FAERS Safety Report 7439875-0 (Version None)
Quarter: 2011Q2

REPORT INFORMATION
  Report Type: 
  Country: None (occurrence: None)
  Receive Date: 20110427
  Receipt Date: 20110420
  Transmission Date: 20111010
  Serious: Yes (Hospitalization)
  Sender: FDA-Public Use
  Company Number: DE-SANOFI-AVENTIS-200912602DE

PATIENT
  Age: 63 Year
  Sex: Male
  Weight: 97 kg

DRUGS (3)
  1. CAPECITABINE [Suspect]
     Route: 048
     Dates: end: 20081201
  2. DOCETAXEL [Suspect]
     Route: 042
     Dates: start: 20081220, end: 20081220
  3. CISPLATIN [Suspect]
     Route: 042
     Dates: start: 20081220, end: 20081220

REACTIONS (1)
  - ANGINA PECTORIS [None]
